FAERS Safety Report 7605069-9 (Version None)
Quarter: 2011Q3

REPORT INFORMATION
  Report Type: 
  Country: None (occurrence: None)
  Receive Date: 20110713
  Receipt Date: 20090331
  Transmission Date: 20111222
  Serious: Yes (Death)
  Sender: FDA-Public Use
  Company Number: US-BAYER-US-2006-034906

PATIENT
  Age: 70 Year
  Sex: Female

DRUGS (8)
  1. LIPITOR [Concomitant]
  2. RENAGEL [Concomitant]
  3. FOSRENOL [Concomitant]
  4. THALIDOMIDE [Concomitant]
     Indication: MULTIPLE MYELOMA
  5. WARFARIN SODIUM [Concomitant]
  6. MIDODRINE HYDROCHLORIDE [Concomitant]
  7. MAGNEVIST [Suspect]
     Indication: ANGIOGRAM
     Dosage: 40 ML, 1 DOSE
     Dates: start: 20040624, end: 20040624
  8. SENSIPAR [Concomitant]

REACTIONS (17)
  - EMOTIONAL DISTRESS [None]
  - SKIN HYPERTROPHY [None]
  - FIBROSIS [None]
  - MUSCLE CONTRACTURE [None]
  - ANHEDONIA [None]
  - MOBILITY DECREASED [None]
  - EXTREMITY CONTRACTURE [None]
  - SKIN INDURATION [None]
  - JOINT CONTRACTURE [None]
  - PAIN [None]
  - ANXIETY [None]
  - OEDEMA PERIPHERAL [None]
  - GENERAL PHYSICAL HEALTH DETERIORATION [None]
  - JOINT RANGE OF MOTION DECREASED [None]
  - SCAR [None]
  - NEPHROGENIC SYSTEMIC FIBROSIS [None]
  - SKIN FIBROSIS [None]
